FAERS Safety Report 6754949-5 (Version None)
Quarter: 2010Q2

REPORT INFORMATION
  Report Type: 
  Country: None (occurrence: None)
  Receive Date: 20100602
  Receipt Date: 20100526
  Transmission Date: 20101027
  Serious: Yes (Other)
  Sender: FDA-Public Use
  Company Number: CN-2010-1165

PATIENT
  Sex: Female

DRUGS (2)
  1. VINORELBINE [Suspect]
     Indication: LUNG ADENOCARCINOMA
     Dosage: 25 MG/M2; IV
     Route: 042
     Dates: start: 20060713
  2. CISPLATIN [Suspect]
     Indication: LUNG ADENOCARCINOMA
     Dosage: 25 MG/M2; IV
     Route: 042
     Dates: start: 20090613

REACTIONS (3)
  - RADIATION SKIN INJURY [None]
  - RECALL PHENOMENON [None]
  - RESPIRATORY FAILURE [None]
